FAERS Safety Report 5723743-6 (Version None)
Quarter: 2008Q2

REPORT INFORMATION
  Report Type: 
  Country: None (occurrence: None)
  Receive Date: 20080430
  Receipt Date: 20080424
  Transmission Date: 20081010
  Serious: Yes (Other)
  Sender: FDA-Public Use
  Company Number: DE-JNJFOC-20080406703

PATIENT
  Age: 13 Year
  Sex: Male

DRUGS (6)
  1. CONCERTA [Suspect]
     Route: 048
  2. CONCERTA [Suspect]
     Indication: DRUG USE FOR UNKNOWN INDICATION
     Route: 048
  3. MEDIKINET [Suspect]
     Route: 048
  4. MEDIKINET [Suspect]
     Route: 048
  5. MEDIKINET [Suspect]
     Indication: DRUG USE FOR UNKNOWN INDICATION
     Route: 048
  6. ANTIBIOTIC DRUG [Concomitant]

REACTIONS (2)
  - CHILLS [None]
  - CONVULSION [None]
